FAERS Safety Report 15395283 (Version 3)
Quarter: 2018Q4

REPORT INFORMATION
  Report Type: Spontaneous
  Country: US (occurrence: US)
  Receive Date: 20180918
  Receipt Date: 20181106
  Transmission Date: 20190204
  Serious: No
  Sender: FDA-Public Use
  Company Number: US-PFIZER INC-2018374472

PATIENT
  Age: 70 Year
  Sex: Female

DRUGS (4)
  1. LATANOPROST. [Suspect]
     Active Substance: LATANOPROST
     Indication: OCULAR HYPERTENSION
     Dosage: 1 GTT, 1X/DAY (1 GTT ON QHS)
     Dates: start: 2012
  2. METOPROLOL. [Concomitant]
     Active Substance: METOPROLOL
     Dosage: 50 MG, UNK
  3. TIMOLOL. [Concomitant]
     Active Substance: TIMOLOL
     Dosage: UNK UNK, 1X/DAY
  4. METFORMIN [Concomitant]
     Active Substance: METFORMIN HYDROCHLORIDE
     Dosage: UNK

REACTIONS (3)
  - Poor quality product administered [Unknown]
  - Product leakage [Unknown]
  - Burning sensation [Unknown]

NARRATIVE: CASE EVENT DATE: 20180902
